FAERS Safety Report 6041862-4 (Version None)
Quarter: 2009Q1

REPORT INFORMATION
  Report Type: 
  Country: None (occurrence: None)
  Receive Date: 20090116
  Receipt Date: 20090106
  Transmission Date: 20090719
  Serious: Yes (Other)
  Sender: FDA-Public Use
  Company Number: TW-JNJFOC-20090102281

PATIENT
  Age: 18 Year
  Sex: Female

DRUGS (1)
  1. TYLENOL (CAPLET) [Suspect]
     Indication: NASOPHARYNGITIS

REACTIONS (3)
  - ERYTHEMA [None]
  - PRURITUS [None]
  - SKIN SWELLING [None]
